FAERS Safety Report 15549439 (Version 1)
Quarter: 2018Q4

REPORT INFORMATION
  Report Type: Spontaneous
  Country: US (occurrence: US)
  Receive Date: 20181025
  Receipt Date: 20181025
  Transmission Date: 20190205
  Serious: No
  Sender: FDA-Public Use
  Company Number: US-PFIZER INC-2018436668

PATIENT
  Age: 43 Year
  Sex: Female

DRUGS (2)
  1. VIBRAMYCIN [Interacting]
     Active Substance: DOXYCYCLINE
     Dosage: 100 MG, 2X/DAY
  2. XELJANZ XR [Suspect]
     Active Substance: TOFACITINIB CITRATE
     Dosage: 11 MG, DAILY

REACTIONS (1)
  - Drug interaction [Unknown]
